FAERS Safety Report 9209519 (Version 2)
Quarter: 2013Q2

REPORT INFORMATION
  Report Type: Spontaneous
  Country: GB (occurrence: GB)
  Receive Date: 20130404
  Receipt Date: 20130517
  Transmission Date: 20140414
  Serious: Yes (Other)
  Sender: FDA-Public Use
  Company Number: GB-ABBOTT-13X-167-1071675-00

PATIENT
  Age: 46 Year
  Sex: Female

DRUGS (4)
  1. EPILIM EC [Suspect]
     Indication: EPILEPSY
     Route: 065
     Dates: start: 1998
  2. LIXISENATIDE [Interacting]
     Indication: DIABETES MELLITUS
     Route: 065
     Dates: start: 20130314
  3. LIXISENATIDE [Interacting]
     Route: 065
     Dates: start: 20130330
  4. INSULATARD [Concomitant]
     Indication: PRODUCT USED FOR UNKNOWN INDICATION

REACTIONS (3)
  - Local swelling [Not Recovered/Not Resolved]
  - Drug interaction [Not Recovered/Not Resolved]
  - Local swelling [Not Recovered/Not Resolved]
